FAERS Safety Report 24731482 (Version 1)
Quarter: 2024Q4

REPORT INFORMATION
  Report Type: Spontaneous
  Country: FR (occurrence: FR)
  Receive Date: 20241213
  Receipt Date: 20241213
  Transmission Date: 20250115
  Serious: Yes (Other)
  Sender: ASTELLAS
  Company Number: FR-ASTELLAS-2024-AER-023922

PATIENT
  Age: 51 Year
  Sex: Female

DRUGS (10)
  1. TACROLIMUS [Suspect]
     Active Substance: TACROLIMUS
     Indication: Renal transplant
     Route: 065
     Dates: start: 202301
  2. IMLIFIDASE [Concomitant]
     Active Substance: IMLIFIDASE
     Indication: Immunosuppression
     Route: 065
     Dates: start: 202301
  3. METHYLPREDNISOLONE [Concomitant]
     Active Substance: METHYLPREDNISOLONE
     Indication: Immunosuppression
     Dosage: DURING THE FIRST WEEK AFTER ALLOGRAFT
     Route: 065
  4. METHYLPREDNISOLONE [Concomitant]
     Active Substance: METHYLPREDNISOLONE
     Dosage: DURING THE FIRST WEEK AFTER ALLOGRAFT
     Route: 065
  5. METHYLPREDNISOLONE [Concomitant]
     Active Substance: METHYLPREDNISOLONE
     Route: 065
     Dates: start: 202301
  6. MYCOPHENOLIC ACID [Concomitant]
     Active Substance: MYCOPHENOLIC ACID
     Indication: Renal transplant
     Dosage: TWO DAYS AFTER TRANSPLANTATION
     Route: 065
     Dates: start: 202301
  7. MYCOPHENOLIC ACID [Concomitant]
     Active Substance: MYCOPHENOLIC ACID
     Route: 065
  8. THYMOGLOBULIN [Concomitant]
     Active Substance: LAPINE T-LYMPHOCYTE IMMUNE GLOBULIN
     Indication: Renal transplant
     Dosage: FROM DAY 4 TO DAY 8
     Route: 065
     Dates: start: 202301
  9. HUMAN IMMUNOGLOBULIN G [Concomitant]
     Active Substance: HUMAN IMMUNOGLOBULIN G
     Indication: Renal transplant
     Dosage: AT DAY 4 AND DAY 5
     Route: 042
     Dates: start: 202301
  10. RITUXIMAB [Concomitant]
     Active Substance: RITUXIMAB
     Indication: Renal transplant
     Dosage: AT DAY 7
     Route: 065
     Dates: start: 202301

REACTIONS (2)
  - Parvovirus B19 infection [Recovering/Resolving]
  - Blood immunoglobulin G decreased [Recovering/Resolving]
